FAERS Safety Report 21941325 (Version 1)
Quarter: 2023Q1

REPORT INFORMATION
  Report Type: Spontaneous
  Country: US (occurrence: US)
  Receive Date: 20230202
  Receipt Date: 20230202
  Transmission Date: 20230418
  Serious: Yes (Death, Other)
  Sender: FDA-Public Use
  Company Number: US-SUN PHARMACEUTICAL INDUSTRIES LTD-2023R1-375879

PATIENT
  Age: 50 Year
  Sex: Male

DRUGS (5)
  1. DASATINIB [Suspect]
     Active Substance: DASATINIB
     Indication: Product used for unknown indication
     Dosage: UNK
     Route: 065
  2. IMATINIB [Suspect]
     Active Substance: IMATINIB
     Indication: Product used for unknown indication
     Dosage: 400 MILLIGRAM, QD
     Route: 065
  3. IMATINIB [Suspect]
     Active Substance: IMATINIB
     Dosage: 200 MILLIGRAM, QD
     Route: 065
  4. NILOTINIB [Suspect]
     Active Substance: NILOTINIB
     Indication: Product used for unknown indication
     Dosage: 400 MG
     Route: 065
  5. NILOTINIB [Suspect]
     Active Substance: NILOTINIB
     Dosage: 200 MG
     Route: 065

REACTIONS (5)
  - Aplastic anaemia [Fatal]
  - Drug intolerance [Fatal]
  - Gastrointestinal toxicity [Fatal]
  - Haemorrhage [Fatal]
  - Pancytopenia [Fatal]
